FAERS Safety Report 6944343-6 (Version None)
Quarter: 2010Q3

REPORT INFORMATION
  Report Type: 
  Country: None (occurrence: None)
  Receive Date: 20100827
  Receipt Date: 20100818
  Transmission Date: 20110219
  Serious: No
  Sender: FDA-Public Use
  Company Number: US-BIOGENIDEC-2010BI029104

PATIENT
  Age: 59 Year
  Sex: Male

DRUGS (2)
  1. AVONEX [Suspect]
     Indication: MULTIPLE SCLEROSIS
     Route: 030
     Dates: start: 20050821, end: 20080120
  2. AVONEX [Suspect]
     Route: 030
     Dates: start: 20100812

REACTIONS (2)
  - GAIT DISTURBANCE [None]
  - VOMITING [None]
